FAERS Safety Report 19041853 (Version 1)
Quarter: 2021Q1

REPORT INFORMATION
  Report Type: Report from Study
  Country: US (occurrence: US)
  Receive Date: 20210322
  Receipt Date: 20210322
  Transmission Date: 20210420
  Serious: No
  Sender: FDA-Public Use
  Company Number: NVSC2021US056219

PATIENT
  Sex: Male

DRUGS (1)
  1. ENTRESTO [Suspect]
     Active Substance: SACUBITRIL\VALSARTAN
     Indication: PRODUCT USED FOR UNKNOWN INDICATION
     Dosage: 100 MG (49/51 MG), BID
     Route: 048

REACTIONS (6)
  - Dizziness [Unknown]
  - Muscle spasms [Recovering/Resolving]
  - Dyspnoea [Unknown]
  - Limb discomfort [Unknown]
  - Angiopathy [Unknown]
  - Insomnia [Recovering/Resolving]
